FAERS Safety Report 20089514 (Version 1)
Quarter: 2021Q4

REPORT INFORMATION
  Report Type: Spontaneous
  Country: US (occurrence: US)
  Receive Date: 20211119
  Receipt Date: 20211119
  Transmission Date: 20220303
  Serious: No
  Sender: FDA-Public Use
  Company Number: US-CELGENE-USA-20211103630

PATIENT
  Sex: Male

DRUGS (2)
  1. REVLIMID [Suspect]
     Active Substance: LENALIDOMIDE
     Indication: Prostate cancer
     Dosage: 25 MILLIGRAM
     Route: 048
     Dates: start: 20210921
  2. REVLIMID [Suspect]
     Active Substance: LENALIDOMIDE
     Indication: Off label use

REACTIONS (1)
  - Platelet count decreased [Unknown]
